FAERS Safety Report 8710683 (Version 3)
Quarter: 2012Q4

REPORT INFORMATION
  Report Type: Spontaneous
  Country: DK (occurrence: None)
  Receive Date: 20120720
  Receipt Date: 20121015
  Transmission Date: 20130627
  Serious: Yes (Death, Other)
  Sender: FDA-Public Use
  Company Number: DKLU1083191

PATIENT
  Age: 44 Year
  Sex: Male

DRUGS (3)
  1. ONFI (CLOBAZAM (CLOBAZAM) [Suspect]
     Indication: EPILEPSY
     Dosage: 10 MG MILLIGRAM(S), 1 IN 1 D, ORAL
     Route: 048
     Dates: start: 20090406
  2. UNSPECIFIED INGREDIENT [Suspect]
     Indication: EPILEPSY
     Dosage: 200 MG MILLIGRAM(S), 2 IN 1 D
     Route: 048
     Dates: start: 20111013, end: 20120511
  3. TEGRETOL [Suspect]
     Indication: EPILEPSY
     Dosage: 2 IN 1 D
     Route: 048

REACTIONS (4)
  - Restlessness [None]
  - Insomnia [None]
  - Convulsion [None]
  - Asphyxia [None]
